FAERS Safety Report 9132318 (Version 1)
Quarter: 2013Q1

REPORT INFORMATION
  Report Type: Spontaneous
  Country: TR (occurrence: TR)
  Receive Date: 20130208
  Receipt Date: 20130208
  Transmission Date: 20140127
  Serious: Yes (Death)
  Sender: FDA-Public Use
  Company Number: US-MEDICIS-2013P1001740

PATIENT
  Sex: Male

DRUGS (2)
  1. AMMONUL [Suspect]
  2. CARBAGLU [Concomitant]

REACTIONS (1)
  - Death [Fatal]
